FAERS Safety Report 10679879 (Version 1)
Quarter: 2014Q4

REPORT INFORMATION
  Report Type: Report from Study
  Country: PL (occurrence: PL)
  Receive Date: 20141229
  Receipt Date: 20141229
  Transmission Date: 20150529
  Serious: Yes (Other)
  Sender: FDA-Public Use
  Company Number: PL-VERTEX PHARMACEUTICALS-2014-004976

PATIENT
  Age: 57 Year
  Sex: Male

DRUGS (3)
  1. TELAPREVIR [Suspect]
     Active Substance: TELAPREVIR
     Indication: HEPATITIS C
     Dosage: 2250 MG, UNK
     Route: 048
     Dates: start: 201307
  2. RIBAVIRIN. [Suspect]
     Active Substance: RIBAVIRIN
     Indication: HEPATITIS C
     Dosage: DOSAGE FORM: UNSPECIFIED
     Route: 065
     Dates: start: 201307
  3. PEGINTERFERON ALFA-2A [Suspect]
     Active Substance: PEGINTERFERON ALFA-2A
     Indication: HEPATITIS C
     Dosage: DOSAGE FORM: UNSPECIFIED
     Route: 065
     Dates: start: 201307

REACTIONS (5)
  - Serum ferritin increased [Unknown]
  - Blood iron increased [Unknown]
  - Alanine aminotransferase increased [Unknown]
  - Antinuclear antibody increased [Unknown]
  - Gamma-glutamyltransferase increased [Unknown]
